FAERS Safety Report 16461257 (Version 1)
Quarter: 2019Q2

REPORT INFORMATION
  Report Type: Spontaneous
  Country: US (occurrence: DE)
  Receive Date: 20190621
  Receipt Date: 20190621
  Transmission Date: 20190711
  Serious: Yes (Other)
  Sender: FDA-Public Use
  Company Number: US-SUNOVION-2019SUN002607

PATIENT

DRUGS (1)
  1. GLYCOPYRROLATE. [Suspect]
     Active Substance: GLYCOPYRROLATE
     Indication: PRODUCT USED FOR UNKNOWN INDICATION
     Dosage: 44 UG, QD
     Route: 065

REACTIONS (6)
  - Nasal congestion [Unknown]
  - Dry mouth [Unknown]
  - Asthenia [Unknown]
  - Swelling face [Not Recovered/Not Resolved]
  - Pain in extremity [Unknown]
  - Lymphadenopathy [Not Recovered/Not Resolved]
